FAERS Safety Report 13287599 (Version 2)
Quarter: 2017Q1

REPORT INFORMATION
  Report Type: Spontaneous
  Country: JP (occurrence: JP)
  Receive Date: 20170302
  Receipt Date: 20170324
  Transmission Date: 20170428
  Serious: Yes (Death)
  Sender: FDA-Public Use
  Company Number: JP-TEVA-742198ISR

PATIENT
  Age: 57 Year
  Sex: Female
  Weight: 45 kg

DRUGS (7)
  1. FENTANYL. [Concomitant]
     Active Substance: FENTANYL
     Indication: CANCER PAIN
     Dosage: 4.2 MILLIGRAM DAILY;
     Route: 062
     Dates: start: 20150810
  2. FENTANYL. [Concomitant]
     Active Substance: FENTANYL
     Dosage: 6.3 MILLIGRAM DAILY;
     Route: 062
     Dates: start: 20150811
  3. DECADRON [Concomitant]
     Active Substance: DEXAMETHASONE
     Dosage: 1.5 MILLIGRAM DAILY;
     Route: 048
     Dates: start: 20150813, end: 20150813
  4. MORPHINE HYDROCHLORIDE HYDRATE [Concomitant]
     Active Substance: MORPHINE HYDROCHLORIDE
     Dosage: 9.6 MILLIGRAM DAILY;
     Route: 058
     Dates: start: 20150803
  5. MORPHINE HYDROCHLORIDE HYDRATE [Concomitant]
     Active Substance: MORPHINE HYDROCHLORIDE
     Indication: BREAKTHROUGH PAIN
     Dosage: .4 MILLIGRAM DAILY;
     Route: 058
  6. E-FEN BUCCAL [Suspect]
     Active Substance: FENTANYL CITRATE
     Indication: BREAKTHROUGH PAIN
     Dosage: UNIT DOSE: 50-100 MCG
     Route: 002
     Dates: start: 20150811, end: 20150813
  7. DECADRON [Concomitant]
     Active Substance: DEXAMETHASONE
     Indication: DECREASED APPETITE
     Dosage: 1 MILLIGRAM DAILY;
     Route: 048
     Dates: start: 20150812, end: 20150812

REACTIONS (1)
  - Breast cancer [Fatal]

NARRATIVE: CASE EVENT DATE: 20150813
